FAERS Safety Report 15492136 (Version 1)
Quarter: 2018Q4

REPORT INFORMATION
  Report Type: Spontaneous
  Country: US (occurrence: US)
  Receive Date: 20181011
  Receipt Date: 20181011
  Transmission Date: 20190205
  Serious: Yes (Other)
  Sender: FDA-Public Use
  Company Number: None

PATIENT
  Age: 50 Year
  Sex: Female
  Weight: 76.5 kg

DRUGS (1)
  1. VALSTARTAN TABLETS USP.160 MG [Suspect]
     Active Substance: VALSARTAN
     Indication: BLOOD PRESSURE MEASUREMENT
     Dosage: ?          QUANTITY:2 TABLET(S);?
     Route: 048
     Dates: start: 20171004, end: 20180305

REACTIONS (6)
  - Bone pain [None]
  - Erythema [None]
  - Pain in extremity [None]
  - Inflammation [None]
  - Abdominal distension [None]
  - Joint swelling [None]

NARRATIVE: CASE EVENT DATE: 20180214
